FAERS Safety Report 5114265-4 (Version None)
Quarter: 2006Q3

REPORT INFORMATION
  Report Type: 
  Country: None (occurrence: None)
  Receive Date: 20060731
  Receipt Date: 20060629
  Transmission Date: 20061208
  Serious: No
  Sender: FDA-Public Use
  Company Number: 2006PV016671

PATIENT
  Age: 73 Year
  Sex: Male
  Weight: 98.4306 kg

DRUGS (1)
  1. BYETTA [Suspect]
     Indication: GLUCOSE TOLERANCE IMPAIRED
     Dosage: 5 MCG BID SC
     Route: 058
     Dates: start: 20060101

REACTIONS (1)
  - MEDICATION ERROR [None]
